FAERS Safety Report 13443848 (Version 1)
Quarter: 2017Q2

REPORT INFORMATION
  Report Type: Spontaneous
  Country: US (occurrence: US)
  Receive Date: 20170414
  Receipt Date: 20170414
  Transmission Date: 20170830
  Serious: Yes (Hospitalization)
  Sender: FDA-Public Use
  Company Number: US-B.I. PHARMACEUTICALS,INC./RIDGEFIELD-2017-BI-020743

PATIENT
  Sex: Male

DRUGS (1)
  1. COMBIVENT [Suspect]
     Active Substance: ALBUTEROL SULFATE\IPRATROPIUM BROMIDE
     Indication: PRODUCT USED FOR UNKNOWN INDICATION
     Dosage: 1 PUFF EVERY 6 HOURS;  FORM STRENGTH AND UNIT DOSE: 20 MCG / 100 MCG; DAILY DOSE: 80 MCG/ 400 MCG, F
     Route: 065

REACTIONS (2)
  - Influenza [Unknown]
  - Heart rate increased [Unknown]

NARRATIVE: CASE EVENT DATE: 2017
